FAERS Safety Report 6749076-7 (Version None)
Quarter: 2010Q2

REPORT INFORMATION
  Report Type: 
  Country: None (occurrence: None)
  Receive Date: 20100601
  Receipt Date: 20100525
  Transmission Date: 20101027
  Serious: Yes (Death, Hospitalization)
  Sender: FDA-Public Use
  Company Number: US-SANOFI-AVENTIS-2010SA030056

PATIENT
  Age: 67 Year
  Sex: Male

DRUGS (9)
  1. RILUTEK [Suspect]
     Route: 048
     Dates: start: 20040101, end: 20090101
  2. RILUTEK [Suspect]
     Route: 048
     Dates: start: 20090101, end: 20100101
  3. ALLEGRA [Concomitant]
     Dates: end: 20100101
  4. ACTONEL [Concomitant]
     Route: 048
     Dates: end: 20100101
  5. COMBIVENT /JOR/ [Concomitant]
     Route: 055
     Dates: end: 20100101
  6. VITAMIN D [Concomitant]
     Dosage: DOSE:50000 UNIT(S)
     Dates: end: 20100101
  7. SINGULAIR [Concomitant]
     Dates: end: 20100101
  8. FLUTICASONE PROPIONATE [Concomitant]
     Route: 045
     Dates: end: 20100101
  9. PULMICORT [Concomitant]
     Dates: end: 20100101

REACTIONS (4)
  - DISEASE PROGRESSION [None]
  - DYSPNOEA [None]
  - OFF LABEL USE [None]
  - THERAPEUTIC RESPONSE UNEXPECTED [None]
